FAERS Safety Report 5330094-0 (Version None)
Quarter: 2007Q2

REPORT INFORMATION
  Report Type: 
  Country: None (occurrence: None)
  Receive Date: 20070521
  Receipt Date: 20070509
  Transmission Date: 20071010
  Serious: Yes (Other)
  Sender: FDA-Public Use
  Company Number: US-MERCK-0705USA02076

PATIENT
  Age: 59 Year
  Sex: Male

DRUGS (5)
  1. PROSCAR [Suspect]
     Indication: BENIGN PROSTATIC HYPERPLASIA
     Route: 048
     Dates: end: 20070401
  2. LIPITOR [Concomitant]
     Route: 065
  3. ASPIRIN [Concomitant]
     Route: 065
  4. OMEGA-3 MARINE TRIGLYCERIDES [Concomitant]
     Route: 065
  5. FLONASE [Concomitant]
     Route: 065

REACTIONS (2)
  - COAGULATION FACTOR VIII LEVEL INCREASED [None]
  - THROMBOPHLEBITIS SUPERFICIAL [None]
